FAERS Safety Report 25602965 (Version 1)
Quarter: 2025Q3

REPORT INFORMATION
  Report Type: Spontaneous
  Country: EU (occurrence: EU)
  Receive Date: 20250724
  Receipt Date: 20250724
  Transmission Date: 20251020
  Serious: Yes (Other)
  Sender: MYLAN
  Company Number: EU-UCBSA-2025039777

PATIENT
  Age: 10 Year

DRUGS (4)
  1. LEVETIRACETAM [Suspect]
     Active Substance: LEVETIRACETAM
     Indication: Benign rolandic epilepsy
     Dosage: UNK UNK, BID, 750 MILLIGRAMS MORNING, 1000 MILLIGRAMS EVENING
  2. LEVETIRACETAM [Suspect]
     Active Substance: LEVETIRACETAM
     Dosage: UNK UNK, BID, 750 MILLIGRAMS MORNING, 1000 MILLIGRAMS EVENING
     Route: 065
  3. LEVETIRACETAM [Suspect]
     Active Substance: LEVETIRACETAM
     Dosage: UNK UNK, BID, 750 MILLIGRAMS MORNING, 1000 MILLIGRAMS EVENING
     Route: 065
  4. LEVETIRACETAM [Suspect]
     Active Substance: LEVETIRACETAM
     Dosage: UNK UNK, BID, 750 MILLIGRAMS MORNING, 1000 MILLIGRAMS EVENING

REACTIONS (3)
  - Seizure [Recovered/Resolved]
  - Product use issue [Unknown]
  - Off label use [Unknown]
